FAERS Safety Report 9265893 (Version 2)
Quarter: 2013Q3

REPORT INFORMATION
  Report Type: Report from Study
  Country: US (occurrence: US)
  Receive Date: 20130501
  Receipt Date: 20130913
  Transmission Date: 20140515
  Serious: Yes (Hospitalization, Other)
  Sender: FDA-Public Use
  Company Number: US-PURDUE-USA-2013-0101661

PATIENT
  Age: 54 Year
  Sex: Male

DRUGS (2)
  1. OXYCONTIN (NDA 22-272) [Suspect]
     Indication: PRODUCT USED FOR UNKNOWN INDICATION
     Dosage: 80 MG, BID
     Route: 048
  2. OXYCONTIN (NDA 22-272) [Suspect]
     Dosage: 40 MG 2 TABLETS IN THE MORNING AND 1 TABLET IN THE EVENING
     Route: 048

REACTIONS (6)
  - Knee arthroplasty [Recovered/Resolved]
  - Femur fracture [Recovered/Resolved]
  - Arthralgia [Unknown]
  - Joint instability [Unknown]
  - Pain in extremity [Unknown]
  - Unevaluable event [Unknown]
